FAERS Safety Report 6090178-9 (Version None)
Quarter: 2009Q1

REPORT INFORMATION
  Report Type: 
  Country: None (occurrence: None)
  Receive Date: 20090220
  Receipt Date: 20090210
  Transmission Date: 20090719
  Serious: Yes (Other)
  Sender: FDA-Public Use
  Company Number: 2009AP000508

PATIENT
  Age: 51 Year
  Sex: Female

DRUGS (4)
  1. HYDROCHLOROTHIAZIDE [Suspect]
     Dosage: 25 MG; QD; PO
     Route: 048
     Dates: start: 20090115, end: 20090122
  2. LISINOPRIL [Concomitant]
  3. PIOGLITAZONE [Concomitant]
  4. HYDROCHLORIDE [Concomitant]

REACTIONS (3)
  - CHEST DISCOMFORT [None]
  - FEELING ABNORMAL [None]
  - OEDEMA PERIPHERAL [None]
